FAERS Safety Report 15298280 (Version 1)
Quarter: 2018Q3

REPORT INFORMATION
  Report Type: Spontaneous
  Country: FR (occurrence: FR)
  Receive Date: 20180820
  Receipt Date: 20180820
  Transmission Date: 20181010
  Serious: Yes (Hospitalization)
  Sender: FDA-Public Use
  Company Number: FR-ALLERGAN-1840632US

PATIENT
  Age: 52 Year
  Sex: Female
  Weight: 85 kg

DRUGS (3)
  1. ESCITALOPRAM OXALATE ? BP [Suspect]
     Active Substance: ESCITALOPRAM OXALATE
     Indication: SUICIDE ATTEMPT
     Dosage: 280 MG, UNK
     Route: 048
     Dates: start: 20180530, end: 20180530
  2. PLAQUENIL [Suspect]
     Active Substance: HYDROXYCHLOROQUINE SULFATE
     Indication: SUICIDE ATTEMPT
     Dosage: 3 G, UNK
     Route: 048
     Dates: start: 20180530, end: 20180530
  3. DOLIPRANE [Suspect]
     Active Substance: ACETAMINOPHEN
     Indication: SUICIDE ATTEMPT
     Dosage: 6 G, UNK
     Route: 048
     Dates: start: 20180530, end: 20180530

REACTIONS (3)
  - Miosis [Recovered/Resolved]
  - Intentional overdose [Unknown]
  - Bradypnoea [Recovered/Resolved]

NARRATIVE: CASE EVENT DATE: 20180530
